FAERS Safety Report 21396938 (Version 1)
Quarter: 2022Q3

REPORT INFORMATION
  Report Type: Spontaneous
  Country: GR (occurrence: GR)
  Receive Date: 20220930
  Receipt Date: 20220930
  Transmission Date: 20221027
  Serious: Yes (Death, Hospitalization)
  Sender: FDA-Public Use
  Company Number: GR-PFIZER INC-2006049476

PATIENT
  Age: 65 Year
  Sex: Male

DRUGS (2)
  1. METHYLPREDNISOLONE SODIUM SUCCINATE [Suspect]
     Active Substance: METHYLPREDNISOLONE SODIUM SUCCINATE
     Dosage: 8 MG, DAILY
  2. INTERFERON [Concomitant]
     Active Substance: INTERFERON
     Dosage: 3 MILLION UNITS 3 TIMES PER WEEK
     Route: 065

REACTIONS (2)
  - Multiple organ dysfunction syndrome [Fatal]
  - Tumour lysis syndrome [Unknown]
